FAERS Safety Report 11714698 (Version 1)
Quarter: 2015Q4

REPORT INFORMATION
  Report Type: Spontaneous
  Country: JP (occurrence: JP)
  Receive Date: 20151109
  Receipt Date: 20151109
  Transmission Date: 20160304
  Serious: Yes (Hospitalization)
  Sender: FDA-Public Use
  Company Number: JP-009507513-1510JPN002596

PATIENT
  Age: 48 Year
  Sex: Male
  Weight: 70 kg

DRUGS (9)
  1. OLMETEC [Concomitant]
     Active Substance: OLMESARTAN MEDOXOMIL
     Indication: HYPERTENSION
     Dosage: FORMULATION-POR
     Route: 048
  2. TRIAZOLAM. [Concomitant]
     Active Substance: TRIAZOLAM
     Dosage: FORMULATION-POR
     Route: 048
  3. LEXOTAN [Concomitant]
     Active Substance: BROMAZEPAM
     Indication: DEPRESSION
     Dosage: FORMULATION-POR, DAILY DOSE UNKNOWN
     Route: 048
  4. REBETOL [Suspect]
     Active Substance: RIBAVIRIN
     Indication: CHRONIC HEPATITIS C
     Dosage: 800 MG, /1 DAY
     Route: 048
     Dates: start: 20150901
  5. SOVALDI [Suspect]
     Active Substance: SOFOSBUVIR
     Indication: CHRONIC HEPATITIS C
     Dosage: 400 MG, DIVIDED DOSE, FREQUENCY UNKNOWN
     Route: 048
     Dates: start: 20150901
  6. PURSENNID (SENNOSIDES) [Concomitant]
     Dosage: DAILY DOSE UNKNOWN
     Route: 048
  7. DEPAS [Concomitant]
     Active Substance: ETIZOLAM
     Indication: ANXIETY
     Dosage: DAILY DOSE UNKNOWN
     Route: 048
  8. WYPAX [Concomitant]
     Active Substance: LORAZEPAM
     Dosage: DAILY DOSE UNKNOWN
     Route: 048
  9. INSULIN [Suspect]
     Active Substance: INSULIN NOS
     Indication: TYPE 2 DIABETES MELLITUS
     Dosage: 25-0-20
     Route: 058

REACTIONS (4)
  - Hypoglycaemia [Recovered/Resolved]
  - Dysgeusia [Unknown]
  - Asthenia [Unknown]
  - Parosmia [Unknown]

NARRATIVE: CASE EVENT DATE: 201509
